FAERS Safety Report 16184576 (Version 3)
Quarter: 2020Q3

REPORT INFORMATION
  Report Type: Spontaneous
  Country: US (occurrence: US)
  Receive Date: 20190411
  Receipt Date: 20200825
  Transmission Date: 20201102
  Serious: Yes (Hospitalization, Other)
  Sender: FDA-Public Use
  Company Number: US-TEVA-2019-US-1036651

PATIENT
  Age: 70 Year
  Sex: Male

DRUGS (8)
  1. SYNRIBO [Suspect]
     Active Substance: OMACETAXINE MEPESUCCINATE
     Dosage: 2.25MG/0.64ML, BID FOR 7 DAYS OF 28 DAY CYCLE
     Route: 058
     Dates: start: 20190315
  2. SYNRIBO [Suspect]
     Active Substance: OMACETAXINE MEPESUCCINATE
     Route: 065
     Dates: start: 20180412
  3. FENOFIBRATE. [Concomitant]
     Active Substance: FENOFIBRATE
  4. TYLENOL [Concomitant]
     Active Substance: ACETAMINOPHEN
  5. LOSARTAN POTASSIUM. [Concomitant]
     Active Substance: LOSARTAN POTASSIUM
  6. SYNRIBO [Suspect]
     Active Substance: OMACETAXINE MEPESUCCINATE
     Indication: CHRONIC MYELOID LEUKAEMIA
     Dosage: 2.25MG/0.64ML
     Route: 065
     Dates: start: 20190314
  7. IRON [Concomitant]
     Active Substance: IRON
  8. TAMSULOSIN [Concomitant]
     Active Substance: TAMSULOSIN

REACTIONS (4)
  - Platelet count decreased [Unknown]
  - Epistaxis [Unknown]
  - Nausea [Unknown]
  - Thrombocytopenia [Unknown]

NARRATIVE: CASE EVENT DATE: 20190403
